FAERS Safety Report 26175590 (Version 1)
Quarter: 2025Q4

REPORT INFORMATION
  Report Type: Spontaneous
  Country: US (occurrence: US)
  Receive Date: 20251218
  Receipt Date: 20251218
  Transmission Date: 20260118
  Serious: Yes (Hospitalization, Other)
  Sender: PURDUE
  Company Number: US-PURDUE-USA-2025-0323059

PATIENT
  Age: 31 Year
  Sex: Male

DRUGS (3)
  1. DEXTROAMPHETAMINE SACCHARATE, AMPHETAMINE ASPARTATE, DEXTROAMPHETAMINE [Suspect]
     Active Substance: AMPHETAMINE ASPARTATE\AMPHETAMINE SULFATE\DEXTROAMPHETAMINE SACCHARATE\DEXTROAMPHETAMINE SULFATE
     Indication: Product used for unknown indication
     Dosage: UNK
     Route: 048
  2. DRONABINOL [Suspect]
     Active Substance: DRONABINOL
     Indication: Product used for unknown indication
     Dosage: UNK
     Route: 048
  3. CANNABIS SATIVA SUBSP. INDICA TOP [Suspect]
     Active Substance: CANNABIS SATIVA SUBSP. INDICA TOP
     Indication: Product used for unknown indication
     Dosage: UNK
     Route: 065

REACTIONS (11)
  - Asthmatic crisis [Not Recovered/Not Resolved]
  - Hyperkalaemia [Recovered/Resolved]
  - Respiratory failure [Unknown]
  - Acute kidney injury [Recovered/Resolved]
  - Blood urine present [Unknown]
  - Respiratory acidosis [Not Recovered/Not Resolved]
  - Renal tubular necrosis [Unknown]
  - Rhabdomyolysis [Unknown]
  - Drug abuse [Unknown]
  - Hypotension [Unknown]
  - Drug screen positive [Unknown]
